FAERS Safety Report 4586788-8 (Version None)
Quarter: 2005Q1

REPORT INFORMATION
  Report Type: 
  Country: None (occurrence: None)
  Receive Date: 20050217
  Receipt Date: 20050217
  Transmission Date: 20050727
  Serious: Yes (Life-Threatening)
  Sender: FDA-Public Use
  Company Number: None

PATIENT
  Age: 50 Year
  Sex: Female
  Weight: 81.6475 kg

DRUGS (2)
  1. CELEBREX [Suspect]
     Indication: FIBROMYALGIA
     Dosage: 200MG    TWICE DAILY   ORAL
     Route: 048
     Dates: start: 19950301, end: 20030331
  2. CELEBREX [Suspect]
     Indication: RHEUMATOID ARTHRITIS
     Dosage: 200MG    TWICE DAILY   ORAL
     Route: 048
     Dates: start: 19950301, end: 20030331

REACTIONS (7)
  - BLOOD PRESSURE INCREASED [None]
  - CARDIAC VALVE DISEASE [None]
  - DYSPNOEA [None]
  - FEELING ABNORMAL [None]
  - HEART RATE IRREGULAR [None]
  - MYOCARDIAL INFARCTION [None]
  - PALPITATIONS [None]
